FAERS Safety Report 6920736-8 (Version None)
Quarter: 2010Q3

REPORT INFORMATION
  Report Type: 
  Country: None (occurrence: None)
  Receive Date: 20100812
  Receipt Date: 20100803
  Transmission Date: 20110219
  Serious: Yes (Hospitalization)
  Sender: FDA-Public Use
  Company Number: US-SANOFI-AVENTIS-2010SA046840

PATIENT
  Age: 73 Year
  Sex: Male

DRUGS (2)
  1. PLAVIX [Suspect]
     Route: 048
     Dates: start: 19970101, end: 20100101
  2. ASPIRIN [Suspect]
     Route: 065
     Dates: end: 20100101

REACTIONS (4)
  - CEREBROVASCULAR ACCIDENT [None]
  - SKIN HAEMORRHAGE [None]
  - SKIN LACERATION [None]
  - THERAPEUTIC AGENT TOXICITY [None]
